FAERS Safety Report 10872179 (Version 1)
Quarter: 2015Q1

REPORT INFORMATION
  Report Type: Spontaneous
  Country: US (occurrence: None)
  Receive Date: 20150223
  Receipt Date: 20150223
  Transmission Date: 20150721
  Serious: Yes (Disabling)
  Sender: FDA-Public Use
  Company Number: None

PATIENT
  Age: 33 Year
  Sex: Male
  Weight: 79.38 kg

DRUGS (2)
  1. STENDRA [Suspect]
     Active Substance: AVANAFIL
     Indication: ERECTILE DYSFUNCTION
     Dosage: 1, ONCE DAILY, TAKEN BY MOUTH
     Route: 048
  2. ZEGERID [Concomitant]
     Active Substance: OMEPRAZOLE\SODIUM BICARBONATE

REACTIONS (1)
  - Retinal detachment [None]

NARRATIVE: CASE EVENT DATE: 20150218
